FAERS Safety Report 12822897 (Version 1)
Quarter: 2016Q4

REPORT INFORMATION
  Report Type: Spontaneous
  Country: BE (occurrence: BE)
  Receive Date: 20161007
  Receipt Date: 20161007
  Transmission Date: 20170207
  Serious: Yes (Death, Other)
  Sender: FDA-Public Use
  Company Number: BE-009507513-1610BEL001398

PATIENT
  Age: 73 Year
  Sex: Female

DRUGS (1)
  1. CASPOFUNGIN ACETATE [Suspect]
     Active Substance: CASPOFUNGIN ACETATE
     Indication: ASPERGILLUS INFECTION
     Dosage: UNK

REACTIONS (2)
  - Drug ineffective [Unknown]
  - Aspergillus infection [Fatal]
